FAERS Safety Report 4608025-8 (Version None)
Quarter: 2005Q2

REPORT INFORMATION
  Report Type: 
  Country: None (occurrence: None)
  Receive Date: 20050228
  Receipt Date: 20041110
  Transmission Date: 20051028
  Serious: No
  Sender: FDA-Public Use
  Company Number: FABR-10765

PATIENT
  Age: 69 Year
  Sex: Female
  Weight: 91 kg

DRUGS (2)
  1. FABRAZYME [Suspect]
     Indication: FABRY'S DISEASE
     Dosage: 79 MG Q2WKS  IV
     Route: 042
     Dates: start: 20030909, end: 20040824
  2. FRUSEMIDE [Concomitant]

REACTIONS (5)
  - ASCITES [None]
  - HYPOCHROMIC ANAEMIA [None]
  - HYPOTENSION [None]
  - OEDEMA PERIPHERAL [None]
  - WEIGHT INCREASED [None]
